FAERS Safety Report 5297718-8 (Version None)
Quarter: 2007Q2

REPORT INFORMATION
  Report Type: 
  Country: None (occurrence: None)
  Receive Date: 20070412
  Receipt Date: 20070412
  Transmission Date: 20071010
  Serious: Yes (Hospitalization)
  Sender: FDA-Public Use
  Company Number: None

PATIENT
  Sex: Female
  Weight: 77.7 kg

DRUGS (13)
  1. BEVACIZUMAB (RHUMAB VEGF) [Suspect]
     Dosage: 1185 MG
     Dates: end: 20070402
  2. FLUOROURACIL [Suspect]
     Dosage: 15600 MG
     Dates: end: 20070402
  3. CAMPTOSAR [Suspect]
     Dosage: 1005 MG
     Dates: end: 20070402
  4. LEUCOVORIN CALCIUM [Suspect]
     Dosage: 2220 MG
     Dates: end: 20070402
  5. ARANESP [Concomitant]
  6. CRESTOR [Concomitant]
  7. DULCOLAX [Concomitant]
  8. DYAZIDE [Concomitant]
  9. GLYBURIDE [Concomitant]
  10. IRON [Concomitant]
  11. LANTUS [Concomitant]
  12. LARRY SOLUTION [Concomitant]
  13. TYLENOL [Concomitant]

REACTIONS (3)
  - ARTHRALGIA [None]
  - DEEP VEIN THROMBOSIS [None]
  - PAIN IN EXTREMITY [None]
